FAERS Safety Report 20159776 (Version 1)
Quarter: 2021Q4

REPORT INFORMATION
  Report Type: Spontaneous
  Country: US (occurrence: US)
  Receive Date: 20211208
  Receipt Date: 20211208
  Transmission Date: 20220303
  Serious: No
  Sender: FDA-Public Use
  Company Number: US-NOVARTISTESTPH-NVSC2021US280560

PATIENT
  Sex: Female

DRUGS (1)
  1. RECLAST [Suspect]
     Active Substance: ZOLEDRONIC ACID
     Indication: Product used for unknown indication
     Dosage: UNK
     Route: 065

REACTIONS (7)
  - Pyrexia [Unknown]
  - Chills [Unknown]
  - Feeling hot [Unknown]
  - Influenza like illness [Unknown]
  - Nausea [Unknown]
  - Hyperhidrosis [Unknown]
  - Condition aggravated [Unknown]
